FAERS Safety Report 18776750 (Version 1)
Quarter: 2021Q1

REPORT INFORMATION
  Report Type: Report from Study
  Country: BR (occurrence: BR)
  Receive Date: 20210122
  Receipt Date: 20210122
  Transmission Date: 20210419
  Serious: Yes (Other)
  Sender: FDA-Public Use
  Company Number: BR-TAKEDA-BR201918285

PATIENT

DRUGS (9)
  1. IDURSULFASE [Suspect]
     Active Substance: IDURSULFASE
     Indication: MUCOPOLYSACCHARIDOSIS II
     Dosage: 14,75 ML (0,5 MG/KG), 1/WEEK
     Route: 042
  2. VITAMIN D [Concomitant]
     Active Substance: VITAMIN D NOS
     Indication: CORONAVIRUS INFECTION
  3. IDURSULFASE [Suspect]
     Active Substance: IDURSULFASE
     Dosage: 15 MILLILITER; EVERY 7 DAYS, 5 VIALS
     Route: 042
  4. ALENIA [BUDESONIDE;FORMOTEROL FUMARATE] [Concomitant]
     Active Substance: BUDESONIDE\FORMOTEROL FUMARATE
     Indication: DYSPNOEA
  5. DIAZEPAM. [Concomitant]
     Active Substance: DIAZEPAM
     Indication: NERVOUSNESS
  6. SYMBICORT [Concomitant]
     Active Substance: BUDESONIDE\FORMOTEROL FUMARATE DIHYDRATE
     Indication: LUNG DISORDER
     Dosage: 6/200
  7. IDURSULFASE [Suspect]
     Active Substance: IDURSULFASE
     Dosage: 14,75 ML (0,5 MG/KG)
     Route: 042
     Dates: start: 20191015
  8. IDURSULFASE [Suspect]
     Active Substance: IDURSULFASE
     Dosage: 5 DOSAGE FORM
     Route: 065
  9. SYMBICORT [Concomitant]
     Active Substance: BUDESONIDE\FORMOTEROL FUMARATE DIHYDRATE
     Indication: ASTHMA

REACTIONS (8)
  - Tooth injury [Unknown]
  - Nausea [Unknown]
  - Alopecia [Unknown]
  - Nervousness [Unknown]
  - Body height increased [Unknown]
  - Fall [Unknown]
  - Labyrinthitis [Unknown]
  - Product dose omission issue [Unknown]
